FAERS Safety Report 9826729 (Version 1)
Quarter: 2014Q1

REPORT INFORMATION
  Report Type: Spontaneous
  Country: US (occurrence: US)
  Receive Date: 20140117
  Receipt Date: 20140117
  Transmission Date: 20141002
  Serious: No
  Sender: FDA-Public Use
  Company Number: US-BIOGENIDEC-2014BI001642

PATIENT
  Age: 43 Year
  Sex: Female

DRUGS (9)
  1. TECFIDERA [Suspect]
     Indication: MULTIPLE SCLEROSIS
     Route: 048
     Dates: start: 20130724, end: 20131213
  2. NEURONTIN [Concomitant]
  3. LINZESS [Concomitant]
  4. SAVELLE [Concomitant]
  5. AMPYRA [Concomitant]
  6. ZANAFLEX [Concomitant]
  7. NUVIGIL [Concomitant]
  8. TYLENOL [Concomitant]
  9. TYSABRI [Concomitant]

REACTIONS (4)
  - Constipation [Unknown]
  - Muscle spasms [Unknown]
  - Nausea [Unknown]
  - Vomiting [Unknown]
